FAERS Safety Report 13229594 (Version 2)
Quarter: 2017Q1

REPORT INFORMATION
  Report Type: Report from Study
  Country: CA (occurrence: CA)
  Receive Date: 20170214
  Receipt Date: 20170224
  Transmission Date: 20170428
  Serious: Yes (Hospitalization)
  Sender: FDA-Public Use
  Company Number: CA-ROCHE-1869129

PATIENT
  Age: 84 Year
  Sex: Female

DRUGS (5)
  1. FOLIC ACID. [Concomitant]
     Active Substance: FOLIC ACID
  2. ACTEMRA [Suspect]
     Active Substance: TOCILIZUMAB
     Indication: RHEUMATOID ARTHRITIS
     Route: 058
     Dates: start: 20161215
  3. SULFASALAZINE. [Concomitant]
     Active Substance: SULFASALAZINE
  4. METHOTREXATE. [Concomitant]
     Active Substance: METHOTREXATE
  5. ARAVA [Concomitant]
     Active Substance: LEFLUNOMIDE

REACTIONS (7)
  - Asthenia [Not Recovered/Not Resolved]
  - Muscular weakness [Not Recovered/Not Resolved]
  - Blood pressure increased [Unknown]
  - Heart rate increased [Unknown]
  - Dyspnoea [Unknown]
  - Cough [Unknown]
  - Blood urine present [Unknown]

NARRATIVE: CASE EVENT DATE: 20161215
